FAERS Safety Report 12256045 (Version 7)
Quarter: 2016Q3

REPORT INFORMATION
  Report Type: Report from Study
  Country: JP (occurrence: JP)
  Receive Date: 20160412
  Receipt Date: 20160713
  Transmission Date: 20161109
  Serious: Yes (Death, Hospitalization, Other)
  Sender: FDA-Public Use
  Company Number: JP-AMGEN-JPNCT2016045086

PATIENT
  Age: 79 Year
  Sex: Female
  Weight: 45 kg

DRUGS (19)
  1. DARBEPOETIN ALFA [Suspect]
     Active Substance: DARBEPOETIN ALFA
     Dosage: 120 MUG, Q4WK
     Route: 058
     Dates: start: 20160105, end: 20160202
  2. DARBEPOETIN ALFA [Suspect]
     Active Substance: DARBEPOETIN ALFA
     Indication: CHRONIC KIDNEY DISEASE
     Dosage: 30 MUG, Q4WK
     Route: 058
     Dates: start: 20150915, end: 20151013
  3. URSO [Concomitant]
     Active Substance: URSODIOL
     Indication: HEPATITIS C
     Dosage: 200 MG, TID
     Route: 048
     Dates: start: 20110207
  4. SAMSCA [Concomitant]
     Active Substance: TOLVAPTAN
     Indication: HEPATIC CIRRHOSIS
     Dosage: 7.5 MG, QD
     Route: 048
     Dates: start: 20160331, end: 20160529
  5. LANSOPRAZOLE. [Concomitant]
     Active Substance: LANSOPRAZOLE
     Dosage: 15 MG, QD
     Route: 048
     Dates: start: 20160527, end: 20160530
  6. DARBEPOETIN ALFA [Suspect]
     Active Substance: DARBEPOETIN ALFA
     Dosage: 60 MUG, Q4WK
     Route: 058
     Dates: start: 20151110, end: 20151208
  7. REZALTAS [Concomitant]
     Active Substance: AZELNIDIPINE\OLMESARTAN MEDOXOMIL
     Indication: HYPERTENSION
     Dosage: UNK, QD
     Route: 048
     Dates: start: 20141118, end: 20160529
  8. REBAMIPIDE [Concomitant]
     Active Substance: REBAMIPIDE
     Indication: PROPHYLAXIS AGAINST GASTROINTESTINAL ULCER
     Dosage: UNK, TID
     Route: 048
     Dates: start: 20160524, end: 20160526
  9. RESTAMIN [Concomitant]
     Active Substance: DIPHENHYDRAMINE
     Indication: PRURITUS
     Dosage: UNK, AS NECESSARY
     Route: 061
     Dates: start: 20160529
  10. DARBEPOETIN ALFA [Suspect]
     Active Substance: DARBEPOETIN ALFA
     Dosage: 120 MUG, Q4WK
     Route: 058
     Dates: start: 20160308, end: 20160502
  11. SENNOSIDE [Concomitant]
     Active Substance: SENNOSIDES
     Indication: CONSTIPATION
     Dosage: 24 MG, QD
     Route: 048
     Dates: start: 20160105, end: 20160529
  12. LOXONIN [Concomitant]
     Active Substance: LOXOPROFEN SODIUM
     Indication: PAIN
     Dosage: 60 MG, TID
     Route: 048
     Dates: start: 20160524, end: 20160526
  13. FEBURIC [Concomitant]
     Active Substance: FEBUXOSTAT
     Indication: HYPERURICAEMIA
     Dosage: 20 MG, QD
     Route: 048
     Dates: start: 20140408, end: 20160529
  14. TETUCUR S [Concomitant]
     Indication: IRON DEFICIENCY ANAEMIA
     Dosage: 100 MG, BID
     Route: 048
     Dates: start: 20151208, end: 20160529
  15. HYDROPHILIC [Concomitant]
     Indication: SKIN FRAGILITY
     Dosage: UNK, AS NECESSARY
     Route: 058
     Dates: start: 20150728
  16. LASIX [Concomitant]
     Active Substance: FUROSEMIDE
     Indication: OEDEMA PERIPHERAL
     Dosage: 160 MG, UNK
     Route: 048
     Dates: start: 20160308
  17. DARBEPOETIN ALFA [Suspect]
     Active Substance: DARBEPOETIN ALFA
     Dosage: 180 MUG, UNK
     Route: 058
  18. LUPRAC [Concomitant]
     Active Substance: TORSEMIDE
     Indication: HYPERURICAEMIA
     Dosage: 4 MG, QD
     Route: 048
     Dates: start: 20130625, end: 20160529
  19. VOLTAREN [Concomitant]
     Active Substance: DICLOFENAC SODIUM
     Indication: PAIN
     Dosage: 25 MG, TID
     Route: 048
     Dates: start: 20160526, end: 20160530

REACTIONS (8)
  - Oedema peripheral [Fatal]
  - Femoral neck fracture [Fatal]
  - Ascites [Recovering/Resolving]
  - Haemorrhoidal haemorrhage [Fatal]
  - Hepatocellular carcinoma [Unknown]
  - Ascites [Fatal]
  - Mallory-Weiss syndrome [Fatal]
  - Ascites [Recovering/Resolving]

NARRATIVE: CASE EVENT DATE: 20151227
